FAERS Safety Report 18464423 (Version 1)
Quarter: 2020Q4

REPORT INFORMATION
  Report Type: Spontaneous
  Country: US (occurrence: US)
  Receive Date: 20201104
  Receipt Date: 20201104
  Transmission Date: 20210114
  Serious: Yes (Other)
  Sender: FDA-Public Use
  Company Number: US-BAUSCH-BL-2020-031021

PATIENT
  Age: 35 Year
  Sex: Male

DRUGS (8)
  1. DEXAMETHASONE. [Suspect]
     Active Substance: DEXAMETHASONE
     Dosage: TAPER DOSE OVER THE FOLLOWING WEEKS
     Route: 042
  2. DEXAMETHASONE. [Suspect]
     Active Substance: DEXAMETHASONE
     Route: 042
     Dates: start: 201712
  3. DEXAMETHASONE. [Suspect]
     Active Substance: DEXAMETHASONE
     Route: 042
     Dates: start: 201801, end: 2018
  4. CEFTRIAXONE. [Concomitant]
     Active Substance: CEFTRIAXONE
     Indication: ANTIFUNGAL PROPHYLAXIS
     Route: 030
     Dates: start: 2017, end: 2017
  5. CEFTRIAXONE. [Concomitant]
     Active Substance: CEFTRIAXONE
     Route: 065
     Dates: start: 201801, end: 201802
  6. DEXAMETHASONE. [Suspect]
     Active Substance: DEXAMETHASONE
     Indication: HAEMOPHAGOCYTIC LYMPHOHISTIOCYTOSIS
     Dosage: AT A DOSE OF 40 MG EVERY 4 DOSES
     Route: 042
     Dates: start: 2017, end: 2017
  7. DEXAMETHASONE. [Suspect]
     Active Substance: DEXAMETHASONE
     Dosage: HIGH DOSE
     Route: 042
     Dates: start: 202002
  8. MYCOPHENOLATE [Suspect]
     Active Substance: MYCOPHENOLIC ACID
     Indication: HAEMOPHAGOCYTIC LYMPHOHISTIOCYTOSIS
     Route: 065
     Dates: start: 201802

REACTIONS (4)
  - Epstein-Barr virus infection [Unknown]
  - Impaired healing [Unknown]
  - Diffuse large B-cell lymphoma [Unknown]
  - Cushingoid [Unknown]

NARRATIVE: CASE EVENT DATE: 201711
